FAERS Safety Report 21082416 (Version 1)
Quarter: 2022Q3

REPORT INFORMATION
  Report Type: Report from Study
  Country: GB (occurrence: GB)
  Receive Date: 20220714
  Receipt Date: 20220714
  Transmission Date: 20221027
  Serious: Yes (Hospitalization)
  Sender: FDA-Public Use
  Company Number: GB-PFIZER INC-PV202200020042

PATIENT
  Age: 61 Year
  Sex: Male
  Weight: 94.6 kg

DRUGS (2)
  1. AXITINIB [Suspect]
     Active Substance: AXITINIB
     Dosage: 3 MG, 2X/DAY
     Dates: start: 20191205, end: 20210127
  2. AVELUMAB [Suspect]
     Active Substance: AVELUMAB
     Dosage: 800 MG, EVERY 2 WEEKS
     Dates: start: 20191205, end: 20201225

REACTIONS (1)
  - Acute kidney injury [Recovered/Resolved with Sequelae]

NARRATIVE: CASE EVENT DATE: 20200813
